FAERS Safety Report 18995270 (Version 1)
Quarter: 2021Q1

REPORT INFORMATION
  Report Type: Report from Study
  Country: US (occurrence: US)
  Receive Date: 20210310
  Receipt Date: 20210310
  Transmission Date: 20210420
  Serious: Yes (Death, Hospitalization, Other)
  Sender: FDA-Public Use
  Company Number: US-BAUSCH-BL-2020-014233

PATIENT
  Age: 72 Year
  Sex: Female

DRUGS (3)
  1. XIFAXAN [Suspect]
     Active Substance: RIFAXIMIN
     Indication: CHRONIC HEPATIC FAILURE
     Dosage: START DATE: FEW YEARS NOW FROM DATE OF REPORT, LAST DOSE WAS A FEW MONTHS AGO FROM DATE OF REPORT
     Route: 048
  2. XIFAXAN [Suspect]
     Active Substance: RIFAXIMIN
     Indication: HEPATIC ENCEPHALOPATHY
     Dosage: START DATE: FEW YEARS NOW FROM DATE OF REPORT, LAST DOSE WAS A FEW MONTHS AGO FROM DATE OF REPORT
     Route: 048
     Dates: end: 2020
  3. XIFAXAN [Suspect]
     Active Substance: RIFAXIMIN
     Indication: HEPATIC CIRRHOSIS

REACTIONS (7)
  - Death [Fatal]
  - Malaise [Not Recovered/Not Resolved]
  - Injury [Unknown]
  - Therapy interrupted [Unknown]
  - Fall [Unknown]
  - Hepatic encephalopathy [Not Recovered/Not Resolved]
  - Insurance issue [Unknown]

NARRATIVE: CASE EVENT DATE: 2020
